FAERS Safety Report 5647363-7 (Version None)
Quarter: 2008Q1

REPORT INFORMATION
  Report Type: 
  Country: None (occurrence: None)
  Receive Date: 20080131
  Receipt Date: 20071207
  Transmission Date: 20080703
  Serious: No
  Sender: FDA-Public Use
  Company Number: 163-21880-07101765

PATIENT
  Age: 75 Year
  Sex: Male

DRUGS (6)
  1. REVLIMID [Suspect]
     Indication: MYELODYSPLASTIC SYNDROME
     Dosage: 5 , 10 MG, DAILY X 21 DAYS,  ORAL
     Route: 048
     Dates: start: 20071016, end: 20071030
  2. REVLIMID [Suspect]
     Indication: PANCYTOPENIA
     Dosage: 5 , 10 MG, DAILY X 21 DAYS,  ORAL
     Route: 048
     Dates: start: 20071016, end: 20071030
  3. REVLIMID [Suspect]
     Indication: MYELODYSPLASTIC SYNDROME
     Dosage: 5 , 10 MG, DAILY X 21 DAYS,  ORAL
     Route: 048
     Dates: start: 20071106
  4. REVLIMID [Suspect]
     Indication: PANCYTOPENIA
     Dosage: 5 , 10 MG, DAILY X 21 DAYS,  ORAL
     Route: 048
     Dates: start: 20071106
  5. OXYBUTYNIN CHLORIDE [Concomitant]
  6. VARDENAFIL (VARDENAFIL) [Concomitant]

REACTIONS (3)
  - DRY SKIN [None]
  - PALPITATIONS [None]
  - PRURITUS [None]
